FAERS Safety Report 5217763-8 (Version None)
Quarter: 2006Q4

REPORT INFORMATION
  Report Type: 
  Country: None (occurrence: None)
  Receive Date: 20061130
  Receipt Date: 20060818
  Transmission Date: 20070319
  Serious: Yes (Hospitalization)
  Sender: FDA-Public Use
  Company Number: US200606003574

PATIENT
  Sex: Male
  Weight: 70.3 kg

DRUGS (1)
  1. ZYPREXA [Suspect]
     Dosage: 10 MG
     Dates: start: 20010727, end: 20020925

REACTIONS (2)
  - ABDOMINAL PAIN [None]
  - PANCREATITIS [None]
